FAERS Safety Report 14374954 (Version 3)
Quarter: 2019Q3

REPORT INFORMATION
  Report Type: Spontaneous
  Country: US (occurrence: US)
  Receive Date: 20180111
  Receipt Date: 20190829
  Transmission Date: 20191004
  Serious: No
  Sender: FDA-Public Use
  Company Number: US-PFIZER INC-2018011907

PATIENT
  Age: 69 Year
  Sex: Female

DRUGS (17)
  1. FLEXERIL [Suspect]
     Active Substance: CYCLOBENZAPRINE HYDROCHLORIDE
     Dosage: UNK
  2. NEURONTIN [Suspect]
     Active Substance: GABAPENTIN
     Dosage: UNK
  3. CODEINE PHOSPHATE [Suspect]
     Active Substance: CODEINE PHOSPHATE
     Dosage: UNK
  4. LEVAQUIN [Suspect]
     Active Substance: LEVOFLOXACIN
     Dosage: UNK
  5. VICTOZA [Suspect]
     Active Substance: LIRAGLUTIDE
     Dosage: UNK
  6. AMOXIL [Suspect]
     Active Substance: AMOXICILLIN
     Dosage: UNK
  7. TEGRETOL [Suspect]
     Active Substance: CARBAMAZEPINE
     Dosage: UNK
  8. CODEINE [Suspect]
     Active Substance: CODEINE
     Dosage: UNK
  9. DOXYCYCLINE HYCLATE. [Suspect]
     Active Substance: DOXYCYCLINE HYCLATE
     Dosage: UNK
  10. BYETTA [Suspect]
     Active Substance: EXENATIDE
     Dosage: UNK
  11. CROMOLYN [Suspect]
     Active Substance: CROMOLYN
     Dosage: UNK
  12. ETODOLAC. [Suspect]
     Active Substance: ETODOLAC
     Dosage: UNK
  13. VANCOMYCIN HCL [Suspect]
     Active Substance: VANCOMYCIN HYDROCHLORIDE
     Dosage: UNK
  14. CIPROFLOXACIN. [Suspect]
     Active Substance: CIPROFLOXACIN
     Dosage: UNK
  15. AMOXICILLIN. [Suspect]
     Active Substance: AMOXICILLIN
     Dosage: UNK
  16. CROMOLYN SODIUM. [Suspect]
     Active Substance: CROMOLYN SODIUM
     Dosage: UNK
  17. NICKEL [Suspect]
     Active Substance: NICKEL
     Dosage: UNK

REACTIONS (1)
  - Drug hypersensitivity [Unknown]
